FAERS Safety Report 4375237-0 (Version None)
Quarter: 2004Q2

REPORT INFORMATION
  Report Type: 
  Country: None (occurrence: None)
  Receive Date: 20040607
  Receipt Date: 20040527
  Transmission Date: 20050107
  Serious: Yes (Other)
  Sender: FDA-Public Use
  Company Number: 2004035822

PATIENT
  Age: 67 Year
  Sex: Male
  Weight: 86.1834 kg

DRUGS (14)
  1. NASALCROM [Suspect]
     Indication: HYPERSENSITIVITY
     Dosage: 1 SPRAY EACH NOSTRIL BID , NASAL
     Route: 045
     Dates: end: 20031201
  2. ATENOLOL [Concomitant]
  3. HYDROCHLOROTHIAZIDE [Concomitant]
  4. TERAZOSIN HCL [Concomitant]
  5. LATANOPROST [Concomitant]
  6. COSOPT [Concomitant]
  7. POTASSIUM CHLORIDE [Concomitant]
  8. CENTRUM SILVER (ASCORBIC ACID, CALCIUM, MINERALS NOS, RETINOL, TOCOPHE [Concomitant]
  9. TOCOPHEROL CONCENTRATE CAP [Concomitant]
  10. CALCIUM CARBONATE [Concomitant]
  11. CALCET PLUS (CALCIUM, FOLIC ACID, IRON, VITAMINS NOS, ZINC) [Concomitant]
  12. MAGNESIUM [Concomitant]
  13. SERENOA REPENS [Concomitant]
  14. SELENIUM TRACE METAL ADDITIVE [Concomitant]

REACTIONS (1)
  - EPISTAXIS [None]
